FAERS Safety Report 7961510-3 (Version None)
Quarter: 2011Q4

REPORT INFORMATION
  Report Type: 
  Country: None (occurrence: None)
  Receive Date: 20111202
  Receipt Date: 20111202
  Transmission Date: 20120403
  Serious: No
  Sender: FDA-Public Use
  Company Number: None

PATIENT
  Sex: Male
  Weight: 73.4827 kg

DRUGS (2)
  1. PEGASYS [Suspect]
     Indication: HEPATITIS C
     Dosage: PEGASYS 180 MCG  QW  SC APPROXIMATELY 11/4/11 TO PRESENT
     Route: 058
  2. RIBAVIRIN [Suspect]
     Indication: HEPATITIS C
     Dosage: RIBAPAK 600MG BID PO APPROXIMATELY 11/4/11 TO PRESENT
     Route: 048

REACTIONS (6)
  - DIZZINESS [None]
  - HAEMATEMESIS [None]
  - ABDOMINAL PAIN UPPER [None]
  - INJECTION SITE ERYTHEMA [None]
  - INJECTION SITE HAEMATOMA [None]
  - COUGH [None]
